FAERS Safety Report 6477896-5 (Version None)
Quarter: 2009Q4

REPORT INFORMATION
  Report Type: 
  Country: None (occurrence: None)
  Receive Date: 20091207
  Receipt Date: 20091123
  Transmission Date: 20100525
  Serious: Yes (Other)
  Sender: FDA-Public Use
  Company Number: PHHY2009BR52005

PATIENT
  Age: 69 Year
  Sex: Female
  Weight: 78 kg

DRUGS (6)
  1. SANDIMMUNE [Suspect]
     Indication: LIVER TRANSPLANT
     Dosage: 100 MG, BID
     Route: 048
     Dates: start: 20030202
  2. SANDIMMUNE [Suspect]
     Dosage: 50 MG, BID
     Route: 048
  3. CYCLOSPORINE [Suspect]
  4. CYCLOSPORINE [Suspect]
  5. BENEFIBER W/ WHEAT DEXTRIN (NCH) [Suspect]
     Dosage: 3.5 G, UNK
  6. BENEFIBER W/ WHEAT DEXTRIN (NCH) [Suspect]
     Dosage: 3.5 G, UNK
     Dates: start: 20091123

REACTIONS (3)
  - DIARRHOEA [None]
  - HEADACHE [None]
  - HYPERTENSION [None]
